FAERS Safety Report 5661789-7 (Version None)
Quarter: 2008Q1

REPORT INFORMATION
  Report Type: 
  Country: None (occurrence: None)
  Receive Date: 20080312
  Receipt Date: 20080305
  Transmission Date: 20080703
  Serious: Yes (Hospitalization)
  Sender: FDA-Public Use
  Company Number: US-JNJFOC-20080100805

PATIENT
  Sex: Male
  Weight: 95.26 kg

DRUGS (2)
  1. TRAMADOL HCL [Suspect]
     Indication: PAIN
     Route: 048
  2. RELAFEN [Concomitant]
     Indication: PAIN
     Route: 048

REACTIONS (3)
  - CHEST PAIN [None]
  - MALAISE [None]
  - NAUSEA [None]
